FAERS Safety Report 5973907-1 (Version None)
Quarter: 2008Q4

REPORT INFORMATION
  Report Type: 
  Country: None (occurrence: None)
  Receive Date: 20081125
  Receipt Date: 20081110
  Transmission Date: 20090506
  Serious: Yes (Disabling)
  Sender: FDA-Public Use
  Company Number: DSA_32673_2008

PATIENT
  Sex: Female

DRUGS (5)
  1. LORAZEPAM [Suspect]
     Indication: DRUG USE FOR UNKNOWN INDICATION
     Dosage: (2 MG QD ORAL), (1 MG QD ORAL), (3 MG QD ORAL)
     Route: 048
     Dates: start: 20080407, end: 20080425
  2. LORAZEPAM [Suspect]
     Indication: DRUG USE FOR UNKNOWN INDICATION
     Dosage: (2 MG QD ORAL), (1 MG QD ORAL), (3 MG QD ORAL)
     Route: 048
     Dates: start: 20080426, end: 20080427
  3. LORAZEPAM [Suspect]
     Indication: DRUG USE FOR UNKNOWN INDICATION
     Dosage: (2 MG QD ORAL), (1 MG QD ORAL), (3 MG QD ORAL)
     Route: 048
     Dates: start: 20080428
  4. TRANYLCYPROMINE SULFATE [Suspect]
     Indication: DEPRESSION
     Dosage: (20 MG QD  ORAL), (10 MG QD ORAL)
     Route: 048
     Dates: start: 20080417, end: 20080421
  5. TRANYLCYPROMINE SULFATE [Suspect]
     Indication: DEPRESSION
     Dosage: (20 MG QD  ORAL), (10 MG QD ORAL)
     Route: 048
     Dates: start: 20080422, end: 20080426

REACTIONS (8)
  - CIRCULATORY COLLAPSE [None]
  - DIZZINESS [None]
  - DRUG INTERACTION [None]
  - FALL [None]
  - HYPOTENSION [None]
  - ILL-DEFINED DISORDER [None]
  - LUMBAR VERTEBRAL FRACTURE [None]
  - PAIN [None]
